FAERS Safety Report 13076393 (Version 1)
Quarter: 2016Q4

REPORT INFORMATION
  Report Type: Spontaneous
  Country: US (occurrence: US)
  Receive Date: 20161229
  Receipt Date: 20161229
  Transmission Date: 20170207
  Serious: Yes (Other)
  Sender: FDA-Public Use
  Company Number: None

PATIENT
  Age: 21 Year
  Sex: Female
  Weight: 42 kg

DRUGS (12)
  1. NITROFURANTOIN. [Concomitant]
     Active Substance: NITROFURANTOIN
  2. VALACYCLOVIR [Concomitant]
     Active Substance: VALACYCLOVIR HYDROCHLORIDE
  3. SULFADIAZINE. [Suspect]
     Active Substance: SULFADIAZINE
     Indication: TOXOPLASMOSIS
     Route: 048
     Dates: start: 20160129, end: 20161011
  4. LEVETIRACETAM. [Concomitant]
     Active Substance: LEVETIRACETAM
  5. PREDNISONE. [Concomitant]
     Active Substance: PREDNISONE
  6. LEUCOVORIN. [Concomitant]
     Active Substance: LEUCOVORIN
  7. VANCOMYCIN [Concomitant]
     Active Substance: VANCOMYCIN
  8. PYRIMETHAMINE [Concomitant]
     Active Substance: PYRIMETHAMINE
  9. AUGMENTIN [Concomitant]
     Active Substance: AMOXICILLIN\CLAVULANATE POTASSIUM
  10. FOLIC ACID. [Concomitant]
     Active Substance: FOLIC ACID
  11. PANTOPRAZOLE [Concomitant]
     Active Substance: PANTOPRAZOLE SODIUM
  12. VORICONAZOLE. [Concomitant]
     Active Substance: VORICONAZOLE

REACTIONS (10)
  - Blood creatinine increased [None]
  - Escherichia bacteraemia [None]
  - Septic shock [None]
  - Klebsiella test positive [None]
  - Metabolic acidosis [None]
  - Nephrolithiasis [None]
  - Herpes simplex [None]
  - Crystal urine present [None]
  - Acute kidney injury [None]
  - Urinary tract infection [None]

NARRATIVE: CASE EVENT DATE: 20161007
